FAERS Safety Report 9753320 (Version 1)
Quarter: 2013Q4

REPORT INFORMATION
  Report Type: Spontaneous
  Country: IT (occurrence: IT)
  Receive Date: 20131213
  Receipt Date: 20131213
  Transmission Date: 20140711
  Serious: Yes (Hospitalization, Other)
  Sender: FDA-Public Use
  Company Number: IT-ASTRAZENECA-2013SE89804

PATIENT
  Age: 19528 Day
  Sex: Female

DRUGS (4)
  1. SEROQUEL [Suspect]
     Indication: DRUG ABUSE
     Route: 049
     Dates: start: 20130619, end: 20130619
  2. LEVOBREN [Suspect]
     Indication: DRUG ABUSE
     Dosage: 25MG/ML ORAL DROPS SOLUTION, 20 ML DAILY.
     Route: 048
     Dates: start: 20130619, end: 20130619
  3. MIRTAZAPINE [Concomitant]
     Route: 048
  4. XANAX [Concomitant]
     Dosage: 0.75 MG/ML ORAL DROPS SOLUTION
     Route: 048

REACTIONS (2)
  - Sopor [Recovering/Resolving]
  - Drug abuse [Unknown]
